FAERS Safety Report 8448822-4 (Version None)
Quarter: 2012Q2

REPORT INFORMATION
  Report Type: 
  Country: None (occurrence: None)
  Receive Date: 20120619
  Receipt Date: 20120608
  Transmission Date: 20120825
  Serious: No
  Sender: FDA-Public Use
  Company Number: US-B.I. PHARMACEUTICALS,INC./RIDGEFIELD-2012-BP-03889BP

PATIENT
  Sex: Male

DRUGS (8)
  1. MEDICATION NOT FURTHER SPECIFIED [Concomitant]
  2. PRADAXA [Suspect]
     Indication: ATRIAL FIBRILLATION
     Dosage: 300 MG
     Route: 048
     Dates: start: 20120101, end: 20120301
  3. MEDICATION NOT FURTHER SPECIFIED [Concomitant]
  4. AMIODARONE HYDROCHLORIDE [Concomitant]
     Indication: ATRIAL FIBRILLATION
     Route: 048
  5. MEDICATION NOT FURTHER SPECIFIED [Concomitant]
  6. MEDICATION NOT FURTHER SPECIFIED [Concomitant]
  7. MEDICATION NOT FURTHER SPECIFIED [Concomitant]
  8. PRADAXA [Suspect]
     Dates: start: 20120301

REACTIONS (5)
  - CONJUNCTIVAL HAEMORRHAGE [None]
  - RASH MACULAR [None]
  - BLEEDING TIME PROLONGED [None]
  - RENAL DISORDER [None]
  - BLOOD URINE PRESENT [None]
